FAERS Safety Report 18533686 (Version 2)
Quarter: 2020Q4

REPORT INFORMATION
  Report Type: Spontaneous
  Country: US (occurrence: US)
  Receive Date: 20201123
  Receipt Date: 20201124
  Transmission Date: 20210114
  Serious: Yes (Hospitalization, Other)
  Sender: FDA-Public Use
  Company Number: US-PFIZER INC-2020460017

PATIENT
  Age: 63 Year
  Sex: Male

DRUGS (1)
  1. INLYTA [Suspect]
     Active Substance: AXITINIB
     Indication: RENAL CANCER
     Dosage: 5 MG, 2X/DAY (TAKE 1 TABLET BY MOUTH TWICE DAILY)
     Route: 048

REACTIONS (8)
  - Hypertension [Unknown]
  - Faeces hard [Unknown]
  - Chest pain [Unknown]
  - Tongue injury [Unknown]
  - Product dose omission issue [Unknown]
  - Tinnitus [Unknown]
  - Glossodynia [Unknown]
  - Constipation [Unknown]
